FAERS Safety Report 8844400 (Version 3)
Quarter: 2013Q1

REPORT INFORMATION
  Report Type: Report from Study
  Country: JP (occurrence: JP)
  Receive Date: 20121017
  Receipt Date: 20130204
  Transmission Date: 20140127
  Serious: Yes (Other)
  Sender: FDA-Public Use
  Company Number: PHHY2012JP089337

PATIENT
  Age: 54 Year
  Sex: Female
  Weight: 39 kg

DRUGS (3)
  1. FTY 720 [Suspect]
     Indication: MULTIPLE SCLEROSIS
     Dosage: 0.5 MG, QD
     Route: 048
     Dates: start: 20121002, end: 20121003
  2. PARIET [Concomitant]
     Dosage: 10 MG, UNK
     Route: 048
  3. SOLDEM 3A [Concomitant]

REACTIONS (4)
  - Electrocardiogram QT prolonged [Recovered/Resolved]
  - Atrioventricular block first degree [Not Recovered/Not Resolved]
  - Electrocardiogram PR prolongation [Recovered/Resolved]
  - Heart rate decreased [Recovered/Resolved]
